FAERS Safety Report 7953506-2 (Version None)
Quarter: 2011Q4

REPORT INFORMATION
  Report Type: 
  Country: None (occurrence: None)
  Receive Date: 20111202
  Receipt Date: 20111128
  Transmission Date: 20120403
  Serious: Yes (Hospitalization, Other)
  Sender: FDA-Public Use
  Company Number: US-PFIZER INC-2011221439

PATIENT
  Sex: Female

DRUGS (15)
  1. ELAVIL [Concomitant]
     Indication: INSOMNIA
     Dosage: UNK
     Dates: start: 19990101, end: 20090101
  2. ALBUTEROL [Concomitant]
     Indication: CHRONIC OBSTRUCTIVE PULMONARY DISEASE
     Dosage: UNK
     Dates: start: 20060101
  3. TRAZODONE [Concomitant]
     Indication: INSOMNIA
     Dosage: UNK
     Dates: start: 19990101, end: 20090101
  4. DIOVAN [Concomitant]
     Indication: BLOOD PRESSURE
     Dosage: UNK
     Dates: start: 20040101
  5. PRILOSEC [Concomitant]
     Indication: GASTROOESOPHAGEAL REFLUX DISEASE
     Dosage: UNK
     Dates: start: 20010101
  6. CHANTIX [Suspect]
     Indication: SMOKING CESSATION THERAPY
     Dosage: 0.5MG/1MG
     Dates: start: 20070901, end: 20071201
  7. CYMBALTA [Concomitant]
     Indication: DEPRESSION
     Dosage: UNK
     Dates: start: 19990101
  8. PAXIL [Concomitant]
     Indication: DEPRESSION
     Dosage: UNK
     Dates: start: 19990101
  9. SPIRIVA [Concomitant]
     Indication: CHRONIC OBSTRUCTIVE PULMONARY DISEASE
     Dosage: UNK
     Dates: start: 20060101
  10. NORTRIPTYLINE [Concomitant]
     Indication: DEPRESSION
     Dosage: UNK
     Dates: start: 19990101
  11. CELEBREX [Concomitant]
     Indication: PAIN
     Dosage: UNK
     Dates: start: 20000101
  12. SEROQUEL [Concomitant]
     Indication: DEPRESSION
     Dosage: UNK
     Dates: start: 19990101
  13. METAXALONE [Concomitant]
     Indication: PAIN
     Dosage: UNK
     Dates: start: 20000101
  14. DUONEB [Concomitant]
     Indication: CHRONIC OBSTRUCTIVE PULMONARY DISEASE
     Dosage: UNK
     Dates: start: 20060101
  15. SIMVASTATIN [Concomitant]
     Indication: BLOOD PRESSURE
     Dosage: UNK
     Dates: start: 20040101

REACTIONS (6)
  - SUICIDAL IDEATION [None]
  - INTENTIONAL SELF-INJURY [None]
  - ABNORMAL BEHAVIOUR [None]
  - DEPRESSION [None]
  - AGGRESSION [None]
  - ANXIETY [None]
